FAERS Safety Report 4446699-5 (Version None)
Quarter: 2004Q3

REPORT INFORMATION
  Report Type: 
  Country: None (occurrence: None)
  Receive Date: 20040908
  Receipt Date: 20040823
  Transmission Date: 20050211
  Serious: Yes (Disabling)
  Sender: FDA-Public Use
  Company Number: 2004SE04852

PATIENT
  Age: 53 Year
  Sex: Female

DRUGS (1)
  1. MARCAIN SPINAL TUNG [Suspect]
     Indication: SPINAL ANAESTHESIA
     Dosage: 15 MG ONCE IT
     Route: 037
     Dates: start: 20010919, end: 20010919

REACTIONS (14)
  - ALLODYNIA [None]
  - ASTHENIA [None]
  - BACK PAIN [None]
  - CAUDA EQUINA SYNDROME [None]
  - CONSTIPATION [None]
  - DIFFICULTY IN WALKING [None]
  - DRUG TOXICITY [None]
  - FALL [None]
  - GASTROINTESTINAL MOTILITY DISORDER [None]
  - HYPOAESTHESIA [None]
  - NERVE INJURY [None]
  - NERVE ROOT COMPRESSION [None]
  - PAIN IN EXTREMITY [None]
  - SLEEP DISORDER [None]
